FAERS Safety Report 4601373-7 (Version None)
Quarter: 2005Q1

REPORT INFORMATION
  Report Type: 
  Country: None (occurrence: None)
  Receive Date: 20050308
  Receipt Date: 20050302
  Transmission Date: 20050727
  Serious: Yes (Hospitalization)
  Sender: FDA-Public Use
  Company Number: 200511962GDDC

PATIENT
  Age: 33 Year
  Sex: Female
  Weight: 60 kg

DRUGS (5)
  1. INSULIN GLARGINE [Suspect]
     Dosage: DOSE UNIT: UNITS
     Route: 058
  2. INSULIN ASPART [Suspect]
     Dosage: DOSE UNIT: UNITS
     Route: 058
  3. CARBAMAZEPINE [Concomitant]
     Dosage: DOSE: UNK
  4. QUETIAPINE FUMARATE [Concomitant]
     Dosage: DOSE: UNK
  5. FLUOXETINE [Concomitant]
     Dosage: DOSE: UNK

REACTIONS (7)
  - BLOOD GLUCOSE FLUCTUATION [None]
  - DEPRESSION [None]
  - HYPERHIDROSIS [None]
  - HYPOGLYCAEMIA [None]
  - INTENTIONAL MISUSE [None]
  - SUICIDE ATTEMPT [None]
  - TREMOR [None]
